FAERS Safety Report 23950028 (Version 1)
Quarter: 2024Q2

REPORT INFORMATION
  Report Type: Spontaneous
  Country: FR (occurrence: FR)
  Receive Date: 20240607
  Receipt Date: 20240607
  Transmission Date: 20240716
  Serious: Yes (Hospitalization, Other)
  Sender: FDA-Public Use
  Company Number: None

PATIENT
  Age: 72 Year
  Sex: Male

DRUGS (14)
  1. FUROSEMIDE [Suspect]
     Active Substance: FUROSEMIDE
     Indication: Oedema
     Dates: start: 20231205, end: 20240122
  2. RILMENIDINE PHOSPHATE [Concomitant]
     Active Substance: RILMENIDINE PHOSPHATE
  3. ALFUZOSIN [Concomitant]
     Active Substance: ALFUZOSIN
  4. FLUDROCORTISONE [Concomitant]
     Active Substance: FLUDROCORTISONE
  5. CALCIPARINE [Concomitant]
     Active Substance: HEPARIN CALCIUM
  6. LOPERAMIDE [Concomitant]
     Active Substance: LOPERAMIDE
  7. LEVOTHYROXINE [Concomitant]
     Active Substance: LEVOTHYROXINE\LEVOTHYROXINE SODIUM
  8. PANTOPRAZOLE [Concomitant]
     Active Substance: PANTOPRAZOLE
  9. POTASSIUM CHLORIDE [Concomitant]
     Active Substance: POTASSIUM CHLORIDE
  10. SMECTA [Concomitant]
     Active Substance: MONTMORILLONITE
  11. SINGULAIR [Concomitant]
     Active Substance: MONTELUKAST SODIUM
  12. HYDROCORTISONE [Concomitant]
     Active Substance: HYDROCORTISONE
  13. VENTOLIN [Concomitant]
     Active Substance: ALBUTEROL SULFATE
  14. BISOPROLOL [Concomitant]
     Active Substance: BISOPROLOL\BISOPROLOL FUMARATE

REACTIONS (2)
  - Condition aggravated [Recovered/Resolved]
  - Acute kidney injury [Recovered/Resolved]

NARRATIVE: CASE EVENT DATE: 20240122
